FAERS Safety Report 6282934-9 (Version None)
Quarter: 2009Q3

REPORT INFORMATION
  Report Type: 
  Country: None (occurrence: None)
  Receive Date: 20090724
  Receipt Date: 20090714
  Transmission Date: 20100115
  Serious: Yes (Hospitalization, Other)
  Sender: FDA-Public Use
  Company Number: US-ELI_LILLY_AND_COMPANY-US200907003005

PATIENT
  Sex: Female

DRUGS (9)
  1. EVISTA [Suspect]
     Dosage: 60 MG, DAILY (1/D)
     Route: 065
     Dates: start: 20010101
  2. LEVOTHYROXINE SODIUM [Concomitant]
     Dosage: 25 MG, DAILY (1/D)
     Route: 065
  3. OMEPRAZOLE [Concomitant]
     Dosage: 20 MG, DAILY (1/D)
     Route: 065
  4. IRON [Concomitant]
     Dosage: 325 MG, DAILY (1/D)
     Route: 065
  5. CENTRUM [Concomitant]
     Dosage: UNK, UNKNOWN
     Route: 065
  6. ASCORBIC ACID [Concomitant]
     Dosage: 500 MG, DAILY (1/D)
     Route: 065
  7. VITAMIN D3 [Concomitant]
     Dosage: 400 IU, DAILY (1/D)
     Route: 065
  8. CALCIUM [Concomitant]
     Dosage: 1000 MG, DAILY (1/D)
     Route: 065
  9. TYLENOL /SCH/ [Concomitant]
     Indication: BACK PAIN
     Dosage: UNK, AS NEEDED
     Route: 065

REACTIONS (4)
  - BACK PAIN [None]
  - BREAST CANCER [None]
  - HERNIA OBSTRUCTIVE [None]
  - INGUINAL HERNIA, OBSTRUCTIVE [None]
